FAERS Safety Report 7210994-7 (Version None)
Quarter: 2011Q1

REPORT INFORMATION
  Report Type: 
  Country: None (occurrence: None)
  Receive Date: 20110105
  Receipt Date: 20101229
  Transmission Date: 20110831
  Serious: Yes (Other)
  Sender: FDA-Public Use
  Company Number: B0688429A

PATIENT
  Age: 82 Year
  Sex: Male

DRUGS (1)
  1. REQUIP [Suspect]
     Indication: PARKINSON'S DISEASE
     Route: 048
     Dates: end: 20101101

REACTIONS (4)
  - MEDICATION RESIDUE [None]
  - DRUG INEFFECTIVE [None]
  - COLON CANCER [None]
  - COLOSTOMY [None]
